FAERS Safety Report 24199771 (Version 2)
Quarter: 2024Q3

REPORT INFORMATION
  Report Type: Spontaneous
  Country: DE (occurrence: DE)
  Receive Date: 20240812
  Receipt Date: 20240909
  Transmission Date: 20241017
  Serious: Yes (Life-Threatening, Hospitalization, Other)
  Sender: SANDOZ
  Company Number: DE-BRISTOL-MYERS SQUIBB COMPANY-2024-114703

PATIENT
  Age: 61 Year
  Sex: Male
  Weight: 64 kg

DRUGS (11)
  1. FLUOROURACIL [Suspect]
     Active Substance: FLUOROURACIL
     Indication: Oesophageal squamous cell carcinoma
     Dosage: 5125 MG
     Route: 042
     Dates: start: 20240628
  2. OXALIPLATIN [Suspect]
     Active Substance: OXALIPLATIN
     Indication: Oesophageal squamous cell carcinoma
     Dosage: 155 MG
     Route: 042
     Dates: start: 20240628
  3. OPDIVO [Suspect]
     Active Substance: NIVOLUMAB
     Indication: Oesophageal squamous cell carcinoma
     Dosage: 240 MG
     Route: 042
     Dates: start: 20240628
  4. APIXABAN [Concomitant]
     Active Substance: APIXABAN
     Indication: Prophylaxis
     Dosage: 5 MG, QD
     Route: 048
     Dates: start: 20240729
  5. DEXAMETHASONE [Concomitant]
     Active Substance: DEXAMETHASONE
     Indication: Prophylaxis
     Dosage: 8 MG, WITH EVERY CHEMOTHERAPY CYCLE
     Route: 042
     Dates: start: 20240628
  6. FENTANYL [Concomitant]
     Active Substance: FENTANYL\FENTANYL CITRATE
     Indication: Product used for unknown indication
     Dosage: 25 ?G/H
     Route: 003
     Dates: start: 20240717
  7. FENTANYL [Concomitant]
     Active Substance: FENTANYL\FENTANYL CITRATE
     Indication: Oesophageal squamous cell carcinoma
  8. FOLIC ACID [Concomitant]
     Active Substance: FOLIC ACID
     Indication: Product used for unknown indication
     Dosage: 730 MG, ABSOLUT, WITH EVERY CHEMOTHERAPY CYCLE
     Route: 042
     Dates: start: 20240628
  9. GRANISETRON [Concomitant]
     Active Substance: GRANISETRON
     Indication: Prophylaxis
     Dosage: 1 MG, WITH EVERY CHEMOTHERAPY CYCLE
     Route: 042
     Dates: start: 20240628
  10. LEVOTHYROXINE [Concomitant]
     Active Substance: LEVOTHYROXINE\LEVOTHYROXINE SODIUM
     Indication: Product used for unknown indication
     Dosage: 100 UG, QD
     Route: 065
  11. ACETAMINOPHEN [Concomitant]
     Active Substance: ACETAMINOPHEN
     Indication: Product used for unknown indication
     Dosage: 500 MG
     Route: 042
     Dates: start: 20240714, end: 20240717

REACTIONS (7)
  - Cardiac failure [Not Recovered/Not Resolved]
  - Aspiration [Unknown]
  - Respiratory failure [Unknown]
  - Fistula [Unknown]
  - Pulmonary embolism [Unknown]
  - Bronchitis bacterial [Recovered/Resolved]
  - Candida pneumonia [Recovered/Resolved]

NARRATIVE: CASE EVENT DATE: 20240704
